FAERS Safety Report 6313941-5 (Version None)
Quarter: 2009Q3

REPORT INFORMATION
  Report Type: 
  Country: None (occurrence: None)
  Receive Date: 20090818
  Receipt Date: 20090817
  Transmission Date: 20100115
  Serious: Yes (Hospitalization)
  Sender: FDA-Public Use
  Company Number: US-EISAI INC.-E2080-00083-CLI-US

PATIENT
  Sex: Female

DRUGS (15)
  1. E2080 [Suspect]
     Indication: EPILEPSY
     Route: 048
     Dates: start: 20080904, end: 20081009
  2. TOPAMAX [Concomitant]
     Indication: EPILEPSY
     Dosage: 50 MG QAM; 75 MG QHS
     Route: 048
     Dates: start: 20080101
  3. KEPPRA [Concomitant]
     Indication: EPILEPSY
     Dosage: 2250 MG QD
     Route: 048
     Dates: start: 20030129
  4. HYDROCHLOROTHIAZIDE [Concomitant]
     Indication: HYPERTENSION
     Dosage: 25 MG QD
     Route: 048
     Dates: start: 20061212
  5. LOPRESSOR [Concomitant]
     Indication: HYPERTENSION
     Dosage: 200 MG BID
     Route: 048
     Dates: start: 20070131
  6. FOLIC ACID [Concomitant]
     Indication: SUPPLEMENTATION THERAPY
     Dosage: 1 TAB QD
     Route: 048
     Dates: start: 20070104
  7. SYNTHROID [Concomitant]
     Indication: HYPOTHYROIDISM
     Dosage: 88 MCG QD
     Route: 048
     Dates: start: 20080815
  8. OMEPRAZOLE [Concomitant]
     Dosage: 40 MG BID
     Route: 048
     Dates: start: 20031106
  9. METFORMIN HCL [Concomitant]
     Dosage: 1000 MG BID
     Route: 048
     Dates: start: 20040621
  10. ESTRATEST [Concomitant]
     Indication: HYSTERECTOMY
     Dosage: 2.5 MG QD
     Route: 048
     Dates: start: 20070901
  11. CLONAZEPAM [Concomitant]
     Indication: INSOMNIA
     Dosage: 0.5 MG QD
     Route: 048
     Dates: start: 20070523
  12. CLONAZEPAM [Concomitant]
     Indication: ANXIETY
  13. OXYCODONE [Concomitant]
     Indication: HEADACHE
     Dosage: 1/2 TAB PRN
     Route: 048
     Dates: start: 20080730
  14. OXYCODONE [Concomitant]
  15. POTASSIUM CHLORIDE [Concomitant]
     Dosage: 20 MCG QAM
     Route: 048
     Dates: start: 20081012

REACTIONS (1)
  - PANCREATITIS ACUTE [None]
